FAERS Safety Report 8008157-0 (Version None)
Quarter: 2011Q4

REPORT INFORMATION
  Report Type: 
  Country: None (occurrence: None)
  Receive Date: 20111227
  Receipt Date: 20110831
  Transmission Date: 20120403
  Serious: No
  Sender: FDA-Public Use
  Company Number: US-BAYER-2011-079910

PATIENT
  Age: 31 Year
  Sex: Male

DRUGS (1)
  1. CIPROFLOXACIN [Suspect]
     Indication: SCROTAL CYST
     Dosage: 2000 MG, UNK
     Route: 048
     Dates: start: 20080101

REACTIONS (2)
  - ARTHRALGIA [None]
  - SWELLING [None]
